FAERS Safety Report 18757051 (Version 4)
Quarter: 2021Q3

REPORT INFORMATION
  Report Type: Spontaneous
  Country: US (occurrence: US)
  Receive Date: 20210119
  Receipt Date: 20210802
  Transmission Date: 20211014
  Serious: Yes (Other)
  Sender: FDA-Public Use
  Company Number: US-PFIZER INC-2016260558

PATIENT
  Age: 61 Year
  Sex: Female
  Weight: 88.45 kg

DRUGS (20)
  1. HYDROCODONE?ACETAMINOPHEN [Concomitant]
     Active Substance: ACETAMINOPHEN\HYDROCODONE
     Indication: FIBROMYALGIA
     Dosage: 5?325 MG , 1?2 TABLETS, DAILY
     Dates: start: 20160524, end: 20160628
  2. LYRICA [Suspect]
     Active Substance: PREGABALIN
     Dosage: 150 MG, 1 CAPSULE THREE A DAY
     Route: 048
  3. CLINDAMYCIN PHOSPHATE. [Concomitant]
     Active Substance: CLINDAMYCIN PHOSPHATE
     Indication: SKIN ULCER
     Dosage: 1% EXT GEL, APPLY TWICE A DAY AS NEEDED
     Dates: start: 20160426
  4. CENTURY [Concomitant]
     Dosage: UNK (AS DIRECTED)
     Route: 048
  5. NORCO [Concomitant]
     Active Substance: ACETAMINOPHEN\HYDROCODONE BITARTRATE
     Dosage: UNK
  6. LYRICA [Suspect]
     Active Substance: PREGABALIN
     Indication: TRIGEMINAL NEURALGIA
     Dosage: 150 MG, TWICE A DAY
     Route: 048
  7. LYRICA [Suspect]
     Active Substance: PREGABALIN
     Dosage: 150 MG, THREE TIMES A DAY
     Route: 048
  8. METHOCARBAMOL. [Concomitant]
     Active Substance: METHOCARBAMOL
     Indication: MUSCLE SPASMS
     Dosage: 1 DF, THREE TIMES DAILY
     Route: 048
     Dates: start: 20141209
  9. LYRICA [Suspect]
     Active Substance: PREGABALIN
     Indication: FIBROMYALGIA
     Dosage: 75 MG (ONE?HALF TABLET OF 150 MG CAPSULE), TWICE A DAY
     Route: 048
  10. LYRICA [Suspect]
     Active Substance: PREGABALIN
     Dosage: 450 MG, DAILY (2 CAPSULES OF 150 MG IN THE MORNING AND 1 CAPSULE EVERY PM)
     Route: 048
     Dates: start: 20190410
  11. LYRICA [Suspect]
     Active Substance: PREGABALIN
     Dosage: 75 MG, TWICE A DAY
     Route: 048
  12. BACTROBAN [Concomitant]
     Active Substance: MUPIROCIN\MUPIROCIN CALCIUM
     Indication: SKIN ULCER
     Dosage: 2% EXT OINT, APPLY TWICE DAILY PRN (AS NEEDED)
     Dates: start: 20160426
  13. CYMBALTA [Concomitant]
     Active Substance: DULOXETINE HYDROCHLORIDE
     Indication: ADJUSTMENT DISORDER WITH DEPRESSED MOOD
     Dosage: UNK
  14. LYRICA [Suspect]
     Active Substance: PREGABALIN
     Dosage: 225 MG, 1 CAPSULE BID (TWICE A DAY)
     Route: 048
  15. GARLIC. [Concomitant]
     Active Substance: GARLIC
     Dosage: 2 DF, DAILY (2 CAPSULE DAILY)
     Dates: start: 20140908
  16. TEMAZEPAM. [Concomitant]
     Active Substance: TEMAZEPAM
     Dosage: 15 MG, 1X/DAY (1 OR 2 CAPSULE AT BEDTIME)
     Dates: start: 20140908
  17. LYRICA [Suspect]
     Active Substance: PREGABALIN
     Dosage: 225 MG (150 MG AND ONE?HALF TABLET OF 150 MG CAPSULE) , TWICE A DAY
     Route: 048
     Dates: start: 20170405
  18. HYDROCODONE?ACETAMINOPHEN [Concomitant]
     Active Substance: ACETAMINOPHEN\HYDROCODONE
     Indication: TRIGEMINAL NEURALGIA
     Dosage: 5?325 MG , 1?2 TABLETS DAILY (AT NIGHT)
     Route: 048
     Dates: start: 20121004
  19. CITALOPRAM HYDROBROMIDE. [Concomitant]
     Active Substance: CITALOPRAM HYDROBROMIDE
     Indication: DEPRESSION
     Dosage: 1 DF, DAILY (INCREASE AS OF 08DEC2015)
     Route: 048
  20. GABAPENTIN. [Concomitant]
     Active Substance: GABAPENTIN
     Indication: TRIGEMINAL NEURALGIA
     Dosage: 1 TABLET, FOUR TIMES A DAY

REACTIONS (4)
  - Memory impairment [Unknown]
  - Arthritis [Unknown]
  - Blindness [Not Recovered/Not Resolved]
  - Product prescribing error [Unknown]

NARRATIVE: CASE EVENT DATE: 202103
